FAERS Safety Report 24271605 (Version 1)
Quarter: 2024Q3

REPORT INFORMATION
  Report Type: Spontaneous
  Country: US (occurrence: US)
  Receive Date: 20240902
  Receipt Date: 20240902
  Transmission Date: 20241016
  Serious: Yes (Hospitalization, Other)
  Sender: INDICUS
  Company Number: US-Indicus Pharma-001034

PATIENT
  Age: 69 Year
  Sex: Male

DRUGS (6)
  1. DONEPEZIL [Suspect]
     Active Substance: DONEPEZIL\DONEPEZIL HYDROCHLORIDE
     Indication: Cognitive disorder
     Dosage: 5 MG ONCE A DAY
     Dates: start: 202304
  2. CLOZAPINE [Suspect]
     Active Substance: CLOZAPINE
     Indication: Schizoaffective disorder
     Dosage: 125 MG AT NIGHT
     Dates: start: 202304
  3. HALOPERIDOL [Suspect]
     Active Substance: HALOPERIDOL
     Indication: Schizoaffective disorder
     Dosage: 7.5 MG 2 TIMES A DAY
     Route: 030
     Dates: start: 202304
  4. LORAZEPAM [Concomitant]
     Active Substance: LORAZEPAM
     Indication: Agitation
     Route: 030
     Dates: start: 202304
  5. DONEPEZIL [Suspect]
     Active Substance: DONEPEZIL\DONEPEZIL HYDROCHLORIDE
     Indication: Cognitive disorder
     Dosage: FROM 5 MG TO 10 MG DAILY
     Dates: start: 202304
  6. DONEPEZIL [Suspect]
     Active Substance: DONEPEZIL\DONEPEZIL HYDROCHLORIDE
     Indication: Cognitive disorder
     Dosage: 5 MG DAILY
     Dates: start: 202309

REACTIONS (2)
  - Delirium [Recovered/Resolved]
  - Cholinergic syndrome [Recovered/Resolved]
